FAERS Safety Report 8350824-3 (Version None)
Quarter: 2012Q2

REPORT INFORMATION
  Report Type: 
  Country: None (occurrence: None)
  Receive Date: 20120510
  Receipt Date: 20120509
  Transmission Date: 20120825
  Serious: Yes (Hospitalization)
  Sender: FDA-Public Use
  Company Number: FR-PFIZER INC-2012107276

PATIENT
  Age: 51 Year
  Sex: Male

DRUGS (9)
  1. DIPRIVAN [Suspect]
     Indication: GENERAL ANAESTHESIA
     Dosage: 300 MG, SINGLE
     Dates: start: 20111108, end: 20111108
  2. KETAMINE HCL [Suspect]
     Indication: GENERAL ANAESTHESIA
     Dosage: 20 MG, SINGLE
     Route: 042
     Dates: start: 20111108, end: 20111108
  3. CEFAZOLIN [Suspect]
     Dosage: 2 G, SINGLE
     Route: 042
     Dates: start: 20111108, end: 20111108
  4. SOLU-MEDROL [Suspect]
     Dosage: 80 MG, SINGLE
     Route: 042
     Dates: start: 20111108, end: 20111108
  5. XANAX [Suspect]
     Indication: ANAESTHETIC PREMEDICATION
     Dosage: 1 MG, SINGLE
     Route: 048
     Dates: start: 20111108, end: 20111108
  6. MIDAZOLAM HCL [Suspect]
     Indication: GENERAL ANAESTHESIA
     Dosage: 1 MG, SINGLE
     Route: 042
     Dates: start: 20111108, end: 20111108
  7. MORPHINE [Suspect]
     Indication: GENERAL ANAESTHESIA
     Dosage: UNK
     Route: 042
     Dates: start: 20111108, end: 20111110
  8. ACETAMINOPHEN [Suspect]
     Indication: ANAESTHESIA
     Dosage: 1 G, 4X/DAY
     Route: 042
     Dates: start: 20111108, end: 20111110
  9. ACUPAN [Suspect]
     Indication: ANALGESIC THERAPY
     Dosage: 20 MG, 1X/DAY
     Route: 042
     Dates: start: 20111108, end: 20111109

REACTIONS (2)
  - PANCREATIC NECROSIS [None]
  - PANCREATITIS ACUTE [None]
